FAERS Safety Report 15795795 (Version 1)
Quarter: 2019Q1

REPORT INFORMATION
  Report Type: Spontaneous
  Country: FR (occurrence: FR)
  Receive Date: 20190107
  Receipt Date: 20190107
  Transmission Date: 20190417
  Serious: Yes (Hospitalization)
  Sender: FDA-Public Use
  Company Number: FR-MYLANLABS-2019M1000037

PATIENT
  Sex: Male
  Weight: 72 kg

DRUGS (8)
  1. TAHOR [Concomitant]
     Active Substance: ATORVASTATIN CALCIUM
     Dosage: UNK
  2. TEMERIT [Concomitant]
     Active Substance: NEBIVOLOL
  3. TAREG [Concomitant]
     Active Substance: VALSARTAN
  4. LEXOMIL [Concomitant]
     Active Substance: BROMAZEPAM
  5. PERMIXON [Concomitant]
     Active Substance: HERBALS\SAW PALMETTO
  6. FLUOXETINE [Concomitant]
     Active Substance: FLUOXETINE HYDROCHLORIDE
  7. BENDAMUSTINE HYDROCHLORIDE. [Suspect]
     Active Substance: BENDAMUSTINE HYDROCHLORIDE
     Indication: CHRONIC LYMPHOCYTIC LEUKAEMIA
     Dosage: UNK
     Route: 042
     Dates: end: 201603
  8. PLAVIX [Concomitant]
     Active Substance: CLOPIDOGREL BISULFATE

REACTIONS (2)
  - Disturbance in attention [Not Recovered/Not Resolved]
  - Pyramidal tract syndrome [Not Recovered/Not Resolved]

NARRATIVE: CASE EVENT DATE: 201606
